FAERS Safety Report 17337773 (Version 1)
Quarter: 2020Q1

REPORT INFORMATION
  Report Type: Spontaneous
  Country: GB (occurrence: GB)
  Receive Date: 20200129
  Receipt Date: 20200129
  Transmission Date: 20200409
  Serious: Yes (Life-Threatening, Other)
  Sender: FDA-Public Use
  Company Number: GB-TEVA-2020-GB-1175586

PATIENT
  Age: 60 Year
  Sex: Male
  Weight: 69 kg

DRUGS (10)
  1. FENTANYL. [Suspect]
     Active Substance: FENTANYL
     Indication: ANAESTHESIA
     Route: 065
  2. SALBUTAMOL [Concomitant]
     Active Substance: ALBUTEROL
  3. CLOPIDOGREL [Concomitant]
     Active Substance: CLOPIDOGREL BISULFATE
  4. IVABRADINE [Suspect]
     Active Substance: IVABRADINE
     Indication: ANGINA PECTORIS
     Route: 048
  5. LANSOPRAZOLE. [Concomitant]
     Active Substance: LANSOPRAZOLE
  6. NEBIVOLOL. [Suspect]
     Active Substance: NEBIVOLOL
     Indication: ANGINA PECTORIS
     Route: 048
  7. STATIN [Concomitant]
     Active Substance: UNSPECIFIED INGREDIENT
  8. SEVOFLURANE. [Suspect]
     Active Substance: SEVOFLURANE
     Indication: ANAESTHESIA
     Route: 065
  9. RANOLAZINE. [Suspect]
     Active Substance: RANOLAZINE
     Indication: ANGINA PECTORIS
     Route: 048
  10. THIAMINE. [Concomitant]
     Active Substance: THIAMINE

REACTIONS (2)
  - Bradycardia [Recovered/Resolved]
  - Hypotension [Recovered/Resolved]
